FAERS Safety Report 9542766 (Version 2)
Quarter: 2013Q4

REPORT INFORMATION
  Report Type: Spontaneous
  Country: US (occurrence: US)
  Receive Date: 20130923
  Receipt Date: 20131101
  Transmission Date: 20140711
  Serious: No
  Sender: FDA-Public Use
  Company Number: US-PFIZER INC-2013272709

PATIENT
  Age: 25 Year
  Sex: Female
  Weight: 48.5 kg

DRUGS (2)
  1. PRISTIQ [Suspect]
     Indication: ANXIETY
     Dosage: 100 MG, DAILY
     Dates: end: 201309
  2. XANAX [Suspect]
     Dosage: UNK

REACTIONS (4)
  - Drug withdrawal syndrome [Recovered/Resolved]
  - Nausea [Not Recovered/Not Resolved]
  - Hyperhidrosis [Not Recovered/Not Resolved]
  - Head discomfort [Not Recovered/Not Resolved]
